FAERS Safety Report 6360394-7 (Version None)
Quarter: 2009Q3

REPORT INFORMATION
  Report Type: 
  Country: None (occurrence: None)
  Receive Date: 20090917
  Receipt Date: 20090910
  Transmission Date: 20100115
  Serious: Yes (Other)
  Sender: FDA-Public Use
  Company Number: US-AMGEN-QUU363866

PATIENT
  Sex: Male

DRUGS (1)
  1. ENBREL [Suspect]
     Indication: DRUG USE FOR UNKNOWN INDICATION
     Route: 058
     Dates: start: 20050128

REACTIONS (10)
  - BLINDNESS TRANSIENT [None]
  - DEAFNESS [None]
  - DIZZINESS [None]
  - EAR INFECTION [None]
  - HYPERSENSITIVITY [None]
  - INFLUENZA [None]
  - LYMPHADENOPATHY [None]
  - MIGRAINE [None]
  - OROPHARYNGEAL PAIN [None]
  - SINUS CONGESTION [None]
